FAERS Safety Report 21211476 (Version 1)
Quarter: 2022Q3

REPORT INFORMATION
  Report Type: Spontaneous
  Country: US (occurrence: None)
  Receive Date: 20220812
  Receipt Date: 20220812
  Transmission Date: 20221027
  Serious: Yes (Hospitalization)
  Sender: FDA-Public Use
  Company Number: None

PATIENT
  Age: 69 Year
  Sex: Female
  Weight: 94.2 kg

DRUGS (2)
  1. BOSUTINIB [Suspect]
     Active Substance: BOSUTINIB
     Indication: Product used for unknown indication
     Dosage: OTHER FREQUENCY : 5DON2DOFF;?
     Route: 048
     Dates: start: 20220310, end: 20220802
  2. IBRANCE [Suspect]
     Active Substance: PALBOCICLIB
     Indication: Product used for unknown indication
     Dosage: OTHER FREQUENCY : DAYS 1-21;?
     Route: 048
     Dates: start: 20220310, end: 20220727

REACTIONS (2)
  - Spinal cord compression [None]
  - Back pain [None]

NARRATIVE: CASE EVENT DATE: 20220811
